FAERS Safety Report 9230764 (Version 1)
Quarter: 2013Q2

REPORT INFORMATION
  Report Type: Spontaneous
  Country: FR (occurrence: None)
  Receive Date: 20130411
  Receipt Date: 20130411
  Transmission Date: 20140414
  Serious: Yes (Hospitalization)
  Sender: FDA-Public Use
  Company Number: AUR-APL-2013-02874

PATIENT
  Age: 90 Year
  Sex: Female

DRUGS (14)
  1. BISOPROLOL [Suspect]
     Indication: PRODUCT USED FOR UNKNOWN INDICATION
     Route: 048
     Dates: end: 20130217
  2. CORDARONE [Suspect]
     Indication: PRODUCT USED FOR UNKNOWN INDICATION
     Route: 048
  3. ISOPTIN [Suspect]
     Indication: PRODUCT USED FOR UNKNOWN INDICATION
     Route: 048
     Dates: end: 20130218
  4. GABAPENTIN (GABAPENTIN) [Concomitant]
  5. ALFUZOSIN (ALFUZOSIN) [Concomitant]
  6. KARDEGIC (ACETYLSALICYLATE LYSINE) [Concomitant]
  7. FUROSEMIDE (FUROSEMIDE) [Concomitant]
  8. MODOPAR (MADOPAR /00349201/) [Concomitant]
  9. STABLON (TIANEPTINE) [Concomitant]
  10. DIFFU K (POTASSIUM CHLORIDE) [Concomitant]
  11. TRAMADOL (TRAMADOL) [Concomitant]
  12. KETOPROFEN (KETOPROFEN) [Concomitant]
  13. CELEBREX (CELECOXIB) [Concomitant]
  14. XANAX (ALPRAZOLAM) [Concomitant]

REACTIONS (2)
  - Malaise [None]
  - Loss of consciousness [None]
